FAERS Safety Report 19213910 (Version 1)
Quarter: 2021Q2

REPORT INFORMATION
  Report Type: Report from Study
  Country: US (occurrence: US)
  Receive Date: 20210504
  Receipt Date: 20210504
  Transmission Date: 20210717
  Serious: Yes (Life-Threatening, Disabling)
  Sender: FDA-Public Use
  Company Number: US-BAUSCH-BL-2021-014081

PATIENT
  Age: 68 Year
  Sex: Female

DRUGS (11)
  1. XIFAXAN [Suspect]
     Active Substance: RIFAXIMIN
     Indication: PRODUCT USED FOR UNKNOWN INDICATION
     Route: 048
  2. CREON [Concomitant]
     Active Substance: PANCRELIPASE AMYLASE\PANCRELIPASE LIPASE\PANCRELIPASE PROTEASE
     Indication: PRODUCT USED FOR UNKNOWN INDICATION
  3. XIFAXAN [Suspect]
     Active Substance: RIFAXIMIN
     Dosage: TAKING PARTIAL DOSES
     Route: 048
  4. B12/METHYLCOBALAMINE [Concomitant]
     Indication: HYPOVITAMINOSIS
  5. EPIPEN [Concomitant]
     Active Substance: EPINEPHRINE
     Indication: HYPERSENSITIVITY
     Dosage: EVERY 6 MONTHS FOR ANAPHYLACTIC SHOCK DUE TO BEE STING OR IF NEEDED INJECT THEN GO TO ER
  6. NEXIUM [Concomitant]
     Active Substance: ESOMEPRAZOLE MAGNESIUM
     Indication: PRODUCT USED FOR UNKNOWN INDICATION
  7. METHYLPHENIDATE. [Concomitant]
     Active Substance: METHYLPHENIDATE
     Indication: NARCOLEPSY
  8. POTASSIUM CL [Concomitant]
     Active Substance: POTASSIUM CHLORIDE
     Indication: HYPOVITAMINOSIS
     Dosage: ER (EXTENDED RELEASE)
  9. VITAMIN D3 [Concomitant]
     Active Substance: CHOLECALCIFEROL
     Indication: HYPOVITAMINOSIS
  10. BUTALBITAL, ASPIRIN, AND CAFFEINE [Concomitant]
     Active Substance: ASPIRIN\BUTALBITAL\CAFFEINE
     Indication: MIGRAINE
     Dosage: AS NEEDED
  11. DIPHENOXYLATE/ATROPINE [Concomitant]
     Active Substance: ATROPINE\DIPHENOXYLATE
     Indication: PRODUCT USED FOR UNKNOWN INDICATION

REACTIONS (9)
  - Discomfort [Unknown]
  - Weight decreased [Not Recovered/Not Resolved]
  - Inability to afford medication [Unknown]
  - Spinal cord injury [Unknown]
  - Ill-defined disorder [Unknown]
  - Therapy interrupted [Unknown]
  - Illness [Unknown]
  - Treatment noncompliance [Unknown]
  - Pancreatic failure [Unknown]
